FAERS Safety Report 4320139-9 (Version None)
Quarter: 2004Q1

REPORT INFORMATION
  Report Type: 
  Country: None (occurrence: None)
  Receive Date: 20040317
  Receipt Date: 20040308
  Transmission Date: 20041129
  Serious: Yes (Hospitalization, Other)
  Sender: FDA-Public Use
  Company Number: FRWYE455210DEC03

PATIENT
  Age: 21 Year
  Sex: Female

DRUGS (1)
  1. ADEPAL (LEVONORGESTREL/ ETHINYL ESTRADIOL, TABLET,0) [Suspect]
     Indication: CONTRACEPTION
     Dosage: 1 TABLET 1X PER 1 DAY ORAL
     Route: 048
     Dates: start: 20011001, end: 20031202

REACTIONS (1)
  - HEPATITIS [None]
